FAERS Safety Report 10240277 (Version 2)
Quarter: 2014Q3

REPORT INFORMATION
  Report Type: Spontaneous
  Country: JP (occurrence: JP)
  Receive Date: 20140617
  Receipt Date: 20140804
  Transmission Date: 20150326
  Serious: Yes (Disabling)
  Sender: FDA-Public Use
  Company Number: PHHY2014JP074241

PATIENT
  Age: 54 Year
  Sex: Female

DRUGS (2)
  1. ZOMETA [Suspect]
     Active Substance: ZOLEDRONIC ACID
     Indication: METASTASES TO BONE
     Dosage: 4 MG (PER ADMINISTRATION)
     Route: 041
     Dates: start: 20100409
  2. INLYTA [Concomitant]
     Active Substance: AXITINIB
     Dosage: UNK UKN, UNK
     Route: 048

REACTIONS (6)
  - Osteonecrosis of jaw [Recovering/Resolving]
  - Necrosis [Recovering/Resolving]
  - Oral pain [Recovering/Resolving]
  - Bone lesion [Recovering/Resolving]
  - Exposed bone in jaw [Recovering/Resolving]
  - Periodontal disease [Recovering/Resolving]

NARRATIVE: CASE EVENT DATE: 20130521
